FAERS Safety Report 22397631 (Version 1)
Quarter: 2023Q2

REPORT INFORMATION
  Report Type: Spontaneous
  Country: KR (occurrence: KR)
  Receive Date: 20230602
  Receipt Date: 20230602
  Transmission Date: 20230722
  Serious: Yes (Hospitalization)
  Sender: FDA-Public Use
  Company Number: KR-ORGANON-O2305KOR003050

PATIENT
  Age: 45 Year
  Sex: Male
  Weight: 40 kg

DRUGS (4)
  1. COZAAR [Suspect]
     Active Substance: LOSARTAN POTASSIUM
     Indication: Essential hypertension
     Dosage: 0.5 FORMULATION, FILM-COATED TABLETS
     Route: 048
     Dates: start: 20180521
  2. R-THIOCTIC ACID TROMETAMINE [Concomitant]
     Indication: Diabetic neuropathy
     Dosage: 480 MILLIGRAM
     Route: 048
     Dates: start: 20180521
  3. DULOXETINE HYDROCHLORIDE [Concomitant]
     Active Substance: DULOXETINE HYDROCHLORIDE
     Indication: Depression
     Dosage: 30 MILLIGRAM, ENTERIC CAPSULES, PELLETS
     Route: 048
     Dates: start: 20180604
  4. PREGABALIN [Concomitant]
     Active Substance: PREGABALIN
     Indication: Diabetic neuropathy
     Dosage: 2 FORMULATION, HARD CAPSULES, ACIDS
     Route: 048
     Dates: start: 20180608

REACTIONS (1)
  - Hyperglycaemia [Recovered/Resolved]

NARRATIVE: CASE EVENT DATE: 20190218
